FAERS Safety Report 16628688 (Version 1)
Quarter: 2019Q3

REPORT INFORMATION
  Report Type: Spontaneous
  Country: US (occurrence: US)
  Receive Date: 20190725
  Receipt Date: 20190725
  Transmission Date: 20191004
  Serious: No
  Sender: FDA-Public Use
  Company Number: US-PFIZER INC-2019314490

PATIENT
  Age: 53 Year
  Sex: Female

DRUGS (1)
  1. XELJANZ [Suspect]
     Active Substance: TOFACITINIB CITRATE
     Dosage: 10 MG, UNK
     Dates: start: 20190701

REACTIONS (5)
  - Upper respiratory tract infection [Unknown]
  - Drug hypersensitivity [Unknown]
  - Throat irritation [Unknown]
  - Rhinorrhoea [Unknown]
  - Sinusitis [Unknown]

NARRATIVE: CASE EVENT DATE: 201907
